FAERS Safety Report 16389322 (Version 2)
Quarter: 2019Q2

REPORT INFORMATION
  Report Type: Spontaneous
  Country: US (occurrence: US)
  Receive Date: 20190604
  Receipt Date: 20190604
  Transmission Date: 20190711
  Serious: Yes (Other)
  Sender: FDA-Public Use
  Company Number: US-BAYER-2019-102093

PATIENT
  Age: 66 Year
  Sex: Female

DRUGS (1)
  1. ALEVE [Suspect]
     Active Substance: NAPROXEN SODIUM
     Dosage: 25 DF, ONCE
     Route: 048
     Dates: start: 20190523

REACTIONS (3)
  - Extra dose administered [Not Recovered/Not Resolved]
  - Intentional self-injury [Not Recovered/Not Resolved]
  - Confusional state [None]

NARRATIVE: CASE EVENT DATE: 20190523
